FAERS Safety Report 24071254 (Version 3)
Quarter: 2024Q3

REPORT INFORMATION
  Report Type: Report from Study
  Country: AR (occurrence: AR)
  Receive Date: 20240710
  Receipt Date: 20240710
  Transmission Date: 20241016
  Serious: No
  Sender: ROCHE
  Company Number: AR-ROCHE-3517019

PATIENT
  Age: 35 Year
  Sex: Female
  Weight: 54.0 kg

DRUGS (1)
  1. RISDIPLAM [Suspect]
     Active Substance: RISDIPLAM
     Indication: Spinal muscular atrophy
     Route: 065
     Dates: start: 20231227

REACTIONS (2)
  - Faeces soft [Not Recovered/Not Resolved]
  - Oedema peripheral [Unknown]
